FAERS Safety Report 10379740 (Version 1)
Quarter: 2014Q3

REPORT INFORMATION
  Report Type: Spontaneous
  Country: US (occurrence: US)
  Receive Date: 20140812
  Receipt Date: 20140812
  Transmission Date: 20150326
  Serious: Yes (Death, Other)
  Sender: FDA-Public Use
  Company Number: PHHY2014US096848

PATIENT
  Age: 13 Year
  Sex: Female

DRUGS (10)
  1. PACLITAXEL. [Suspect]
     Active Substance: PACLITAXEL
     Indication: METASTASES TO BONE
  2. VORINOSTAT [Suspect]
     Active Substance: VORINOSTAT
     Indication: SQUAMOUS CELL CARCINOMA
     Dosage: 180 MG/M2, DAILY
     Route: 048
  3. TOPOTECAN [Suspect]
     Active Substance: TOPOTECAN\TOPOTECAN HYDROCHLORIDE
     Indication: METASTASES TO BONE
  4. CISPLATIN. [Suspect]
     Active Substance: CISPLATIN
     Indication: SQUAMOUS CELL CARCINOMA
     Dosage: 50 MG/M2 ON DAYS 1 AND 2, EVERY 3 WEEKS
  5. CISPLATIN. [Suspect]
     Active Substance: CISPLATIN
     Indication: METASTASES TO BONE
  6. CYCLOPHOSPHAMIDE. [Suspect]
     Active Substance: CYCLOPHOSPHAMIDE
     Indication: SQUAMOUS CELL CARCINOMA
     Dosage: 240 MG/M2, UNK
  7. CYCLOPHOSPHAMIDE. [Suspect]
     Active Substance: CYCLOPHOSPHAMIDE
     Indication: METASTASES TO BONE
  8. TOPOTECAN [Suspect]
     Active Substance: TOPOTECAN\TOPOTECAN HYDROCHLORIDE
     Indication: SQUAMOUS CELL CARCINOMA
     Dosage: 0.7 MG/M2, DAILY
  9. VORINOSTAT [Suspect]
     Active Substance: VORINOSTAT
     Indication: METASTASES TO BONE
  10. PACLITAXEL. [Suspect]
     Active Substance: PACLITAXEL
     Indication: SQUAMOUS CELL CARCINOMA
     Dosage: 250 MG/M2, ON DAY 1

REACTIONS (12)
  - Weight decreased [Unknown]
  - Thrombocytopenia [Unknown]
  - Nausea [Unknown]
  - Hepatic lesion [Unknown]
  - Malignant neoplasm progression [Unknown]
  - Metastases to bone [Unknown]
  - Vomiting [Unknown]
  - Death [Fatal]
  - Malignant ascites [Unknown]
  - Metastatic squamous cell carcinoma [Unknown]
  - Lymphadenopathy [Unknown]
  - Metastases to lymph nodes [Unknown]
